FAERS Safety Report 4297318-2 (Version None)
Quarter: 2004Q1

REPORT INFORMATION
  Report Type: 
  Country: None (occurrence: None)
  Receive Date: 20040213
  Receipt Date: 20040204
  Transmission Date: 20041129
  Serious: Yes (Hospitalization)
  Sender: FDA-Public Use
  Company Number: 2003181469CA

PATIENT
  Age: 42 Year
  Sex: Female

DRUGS (8)
  1. CAMPTOSAR [Suspect]
     Indication: OESOPHAGEAL CANCER METASTATIC
     Dosage: 71.7 MG, EVERY 3 WEEKS, CYCLE 1, IV
     Route: 042
     Dates: start: 20031002, end: 20031002
  2. COMPARATOR-CISPLATIN (CISPLATIN, CISPLATIN) INJECTION [Suspect]
     Indication: OESOPHAGEAL CANCER METASTATIC
     Dosage: 90 MG, EVERY 3 WEEKS, CYCLE 1, IV
     Route: 042
     Dates: start: 20031002, end: 20031002
  3. DOCETAXEL (DOCETAXEL) [Suspect]
     Indication: OESOPHAGEAL CANCER METASTATIC
     Dosage: 90 MG, EVERY 3 WEEKS, CYCLE 1, IV
     Route: 042
     Dates: start: 20031002, end: 20031002
  4. ZOFRAN [Concomitant]
  5. MAXERAN [Concomitant]
  6. PROCHLORPERAZINE [Concomitant]
  7. DECADRON [Concomitant]
  8. HYDROMORPHONE HCL [Concomitant]

REACTIONS (14)
  - ANAEMIA [None]
  - BLOOD CULTURE POSITIVE [None]
  - CANDIDIASIS [None]
  - DEHYDRATION [None]
  - DIARRHOEA [None]
  - DISEASE PROGRESSION [None]
  - FEBRILE NEUTROPENIA [None]
  - GASTROINTESTINAL HAEMORRHAGE [None]
  - KLEBSIELLA INFECTION [None]
  - OESOPHAGEAL CANCER METASTATIC [None]
  - PLEURAL EFFUSION [None]
  - PNEUMONIA [None]
  - PYREXIA [None]
  - VOMITING [None]
